FAERS Safety Report 7741948-X (Version None)
Quarter: 2011Q3

REPORT INFORMATION
  Report Type: 
  Country: None (occurrence: None)
  Receive Date: 20110907
  Receipt Date: 20110907
  Transmission Date: 20111222
  Serious: Yes (Hospitalization)
  Sender: FDA-Public Use
  Company Number: None

PATIENT
  Sex: Female
  Weight: 74.9 kg

DRUGS (2)
  1. TAXOL [Suspect]
     Dosage: 302 MG
  2. CARBOPLATIN [Suspect]
     Dosage: 558 MG

REACTIONS (1)
  - FEBRILE NEUTROPENIA [None]
